FAERS Safety Report 9773793 (Version 2)
Quarter: 2014Q1

REPORT INFORMATION
  Report Type: Spontaneous
  Country: IT (occurrence: IT)
  Receive Date: 20131220
  Receipt Date: 20140206
  Transmission Date: 20141002
  Serious: Yes (Other)
  Sender: FDA-Public Use
  Company Number: IT-009507513-1312ITA007877

PATIENT
  Age: 54 Year
  Sex: Male
  Weight: 95 kg

DRUGS (5)
  1. FINASTERIDE [Suspect]
     Indication: BENIGN PROSTATIC HYPERPLASIA
     Dosage: 5 MG, QD
     Route: 048
     Dates: start: 20131116
  2. TACHIDOL [Interacting]
     Indication: BACK PAIN
     Dosage: 500 MG+ 30 MG, 1 DF, PRN
     Route: 048
     Dates: start: 20131115, end: 20131118
  3. UROREC [Interacting]
     Indication: BENIGN PROSTATIC HYPERPLASIA
     Dosage: 8 MG, QD
     Route: 048
     Dates: start: 20131116
  4. MODITEN DEPOT (FLUPHENAZINE DECANOATE) [Concomitant]
     Dosage: 25 MG/ 1 ML
     Route: 030
     Dates: start: 20110101
  5. EN [Concomitant]
     Indication: ANXIETY
     Dosage: 1 MG/ ML
     Route: 048
     Dates: start: 20040101

REACTIONS (3)
  - Fluid retention [Not Recovered/Not Resolved]
  - Renal pain [Not Recovered/Not Resolved]
  - Drug interaction [Not Recovered/Not Resolved]
